FAERS Safety Report 12611829 (Version 1)
Quarter: 2016Q3

REPORT INFORMATION
  Report Type: Spontaneous
  Country: US (occurrence: US)
  Receive Date: 20160801
  Receipt Date: 20160801
  Transmission Date: 20161109
  Serious: No
  Sender: FDA-Public Use
  Company Number: US-PFIZER INC-3061086

PATIENT
  Age: 57 Year
  Sex: Female

DRUGS (3)
  1. FOLIC ACID. [Suspect]
     Active Substance: FOLIC ACID
     Indication: SYNOVITIS
     Dosage: 1 MG, FREQ: 1 DAY, INTERVAL: 1
     Dates: start: 20110301
  2. METHOTREXATE SODIUM. [Suspect]
     Active Substance: METHOTREXATE SODIUM
     Dosage: 10 MG, WEEKLY
     Dates: start: 20110301
  3. METHOTREXATE SODIUM. [Suspect]
     Active Substance: METHOTREXATE SODIUM
     Indication: SYNOVITIS
     Dosage: 15 MG, WEEKLY
     Dates: start: 20110801

REACTIONS (8)
  - Joint swelling [Unknown]
  - Musculoskeletal stiffness [Unknown]
  - Fatigue [Unknown]
  - Hand deformity [Unknown]
  - Pain [Unknown]
  - Therapy non-responder [Unknown]
  - Elbow deformity [Unknown]
  - Foot deformity [Unknown]

NARRATIVE: CASE EVENT DATE: 20110801
